FAERS Safety Report 7872302 (Version 2)
Quarter: 2014Q4

REPORT INFORMATION
  Report Type: Spontaneous
  Country: JP (occurrence: None)
  Receive Date: 20110304
  Receipt Date: 20141008
  Transmission Date: 20150529
  Serious: Yes (Hospitalization, Disabling)
  Sender: FDA-Public Use
  Company Number: JP-20100016

PATIENT
  Age: 81 Year
  Sex: Male

DRUGS (2)
  1. ETHIODIZED OIL [Suspect]
     Active Substance: ETHIODIZED OIL
     Indication: THERAPEUTIC EMBOLISATION
     Route: 013
     Dates: start: 20080710, end: 20080710
  2. CISPLATIN. [Suspect]
     Active Substance: CISPLATIN
     Indication: THERAPEUTIC EMBOLISATION
     Route: 013
     Dates: start: 20100710, end: 20100710

REACTIONS (9)
  - Skin ulcer [None]
  - Hepatic cancer [None]
  - Haemoglobin decreased [None]
  - Platelet count decreased [None]
  - Pain [None]
  - Abdominal pain upper [None]
  - Rash [None]
  - Off label use [None]
  - Neoplasm malignant [None]

NARRATIVE: CASE EVENT DATE: 20080710
